FAERS Safety Report 13619987 (Version 1)
Quarter: 2017Q2

REPORT INFORMATION
  Report Type: Spontaneous
  Country: BR (occurrence: BR)
  Receive Date: 20170607
  Receipt Date: 20170607
  Transmission Date: 20170830
  Serious: Yes (Hospitalization, Other)
  Sender: FDA-Public Use
  Company Number: BR-AMGEN-BRASP2017085350

PATIENT
  Age: 46 Year
  Sex: Male
  Weight: 70 kg

DRUGS (3)
  1. MIMPARA [Suspect]
     Active Substance: CINACALCET HYDROCHLORIDE
     Dosage: 30 MG, TID
     Route: 048
     Dates: start: 201701
  2. RENAGEL [Concomitant]
     Active Substance: SEVELAMER HYDROCHLORIDE
  3. MIMPARA [Suspect]
     Active Substance: CINACALCET HYDROCHLORIDE
     Indication: BLOOD PARATHYROID HORMONE INCREASED
     Dosage: 30 MG, BID
     Route: 048
     Dates: start: 201601

REACTIONS (5)
  - Arthralgia [Unknown]
  - Drug effect incomplete [Not Recovered/Not Resolved]
  - Bone pain [Recovering/Resolving]
  - Abasia [Recovering/Resolving]
  - Parathyroid disorder [Unknown]

NARRATIVE: CASE EVENT DATE: 201607
